FAERS Safety Report 9262578 (Version 3)
Quarter: 2013Q3

REPORT INFORMATION
  Report Type: Spontaneous
  Country: CA (occurrence: CA)
  Receive Date: 20130430
  Receipt Date: 20130810
  Transmission Date: 20140515
  Serious: Yes (Hospitalization)
  Sender: FDA-Public Use
  Company Number: CA-ROCHE-1217574

PATIENT
  Age: 42 Year
  Sex: Male
  Weight: 86.08 kg

DRUGS (8)
  1. XOLAIR [Suspect]
     Indication: ASTHMA
     Route: 058
     Dates: start: 20080325
  2. XOLAIR [Suspect]
     Route: 058
     Dates: start: 20080408
  3. XOLAIR [Suspect]
     Route: 058
     Dates: start: 20100316
  4. XOLAIR [Suspect]
     Route: 058
     Dates: start: 20100413
  5. ADVAIR [Concomitant]
  6. SINGULAIR [Concomitant]
  7. VENTOLIN [Concomitant]
  8. FLONASE [Concomitant]

REACTIONS (6)
  - Bronchitis [Not Recovered/Not Resolved]
  - Nasal congestion [Not Recovered/Not Resolved]
  - Eczema [Not Recovered/Not Resolved]
  - Eczema [Not Recovered/Not Resolved]
  - Productive cough [Not Recovered/Not Resolved]
  - Drug ineffective [Unknown]
